FAERS Safety Report 10047360 (Version 1)
Quarter: 2014Q1

REPORT INFORMATION
  Report Type: Spontaneous
  Country: US (occurrence: None)
  Receive Date: 20140328
  Receipt Date: 20140328
  Transmission Date: 20141002
  Serious: Yes (Hospitalization)
  Sender: FDA-Public Use
  Company Number: None

PATIENT
  Age: 64 Year
  Sex: Male
  Weight: 123.6 kg

DRUGS (2)
  1. LISINOPRIL [Suspect]
     Indication: STENT PLACEMENT
     Dosage: ~10/01/2013 THRU 03/21/2014
     Route: 048
     Dates: start: 20131001, end: 20140321
  2. LISINOPRIL [Suspect]
     Indication: HYPERTENSION
     Dosage: ~10/01/2013 THRU 03/21/2014
     Route: 048
     Dates: start: 20131001, end: 20140321

REACTIONS (2)
  - Angioedema [None]
  - Dyspnoea [None]
